FAERS Safety Report 10665890 (Version 1)
Quarter: 2014Q4

REPORT INFORMATION
  Report Type: Report from Study
  Country: US (occurrence: US)
  Receive Date: 20141219
  Receipt Date: 20141219
  Transmission Date: 20150529
  Serious: Yes (Hospitalization, Other)
  Sender: FDA-Public Use
  Company Number: PHEH2014US024905

PATIENT
  Age: 48 Year
  Sex: Female

DRUGS (4)
  1. TOBI PODHALER [Suspect]
     Active Substance: TOBRAMYCIN
     Indication: CYSTIC FIBROSIS
     Dosage: 112 MG, BID
     Route: 055
     Dates: start: 201408, end: 201409
  2. TOBRAMYCIN. [Suspect]
     Active Substance: TOBRAMYCIN
     Dosage: 3 WEEKS COURSE
     Route: 042
  3. TOBRAMYCIN. [Suspect]
     Active Substance: TOBRAMYCIN
     Indication: PRODUCT USED FOR UNKNOWN INDICATION
     Dosage: 3 WEEKS COURSE
     Route: 042
  4. TOBI [Suspect]
     Active Substance: TOBRAMYCIN
     Indication: CYSTIC FIBROSIS
     Dosage: 300 MG/5ML, TWICE A DAY
     Route: 055

REACTIONS (11)
  - Cystic fibrosis [Unknown]
  - Condition aggravated [Unknown]
  - Periorbital contusion [Unknown]
  - Fall [Unknown]
  - Eyelid ptosis [Unknown]
  - Aphonia [Recovered/Resolved]
  - Malaise [Unknown]
  - Cough [Recovered/Resolved]
  - Balance disorder [Unknown]
  - Inner ear disorder [Unknown]
  - Skin abrasion [Unknown]

NARRATIVE: CASE EVENT DATE: 201409
